FAERS Safety Report 14617964 (Version 1)
Quarter: 2018Q1

REPORT INFORMATION
  Report Type: Spontaneous
  Country: US (occurrence: US)
  Receive Date: 20180309
  Receipt Date: 20180309
  Transmission Date: 20180509
  Serious: No
  Sender: FDA-Public Use
  Company Number: None

PATIENT
  Age: 64 Year
  Sex: Female

DRUGS (26)
  1. OCALIVA [Suspect]
     Active Substance: OBETICHOLIC ACID
     Indication: BILIARY CIRRHOSIS
     Route: 048
     Dates: start: 20180223
  2. CEVIMELINE. [Concomitant]
     Active Substance: CEVIMELINE
  3. PLAQUENIL [Concomitant]
     Active Substance: HYDROXYCHLOROQUINE SULFATE
  4. SULFASALAZINE DELAYED-RELEASE [Concomitant]
     Active Substance: SULFASALAZINE
  5. ALBUTEROL. [Concomitant]
     Active Substance: ALBUTEROL
  6. LISINOPRIL. [Concomitant]
     Active Substance: LISINOPRIL
  7. OXYCODONE [Concomitant]
     Active Substance: OXYCODONE
  8. VITAMIN D3 [Concomitant]
     Active Substance: CHOLECALCIFEROL
  9. LUTEIN [Concomitant]
     Active Substance: LUTEIN
  10. NABUMETONE. [Concomitant]
     Active Substance: NABUMETONE
  11. URSODIOL. [Concomitant]
     Active Substance: URSODIOL
  12. AMLOD/ATORVA [Concomitant]
  13. ENBREL [Concomitant]
     Active Substance: ETANERCEPT
  14. MUCINEX [Concomitant]
     Active Substance: GUAIFENESIN
  15. RHINOCORT [Concomitant]
     Active Substance: BUDESONIDE
  16. FISH OIL [Concomitant]
     Active Substance: FISH OIL
  17. VIACTIV [Concomitant]
     Active Substance: CALCIUM\VITAMIN D\VITAMIN K5
  18. FAMOTIDINE. [Concomitant]
     Active Substance: FAMOTIDINE
  19. RESTASIS [Concomitant]
     Active Substance: CYCLOSPORINE
  20. SERTRALINE [Concomitant]
     Active Substance: SERTRALINE HYDROCHLORIDE
  21. ZYRTEC [Concomitant]
     Active Substance: CETIRIZINE HYDROCHLORIDE
  22. CALCIUM/D [Concomitant]
  23. GABAPENTIN. [Concomitant]
     Active Substance: GABAPENTIN
  24. MAGNESIUM [Concomitant]
     Active Substance: MAGNESIUM
  25. NEXIUM [Concomitant]
     Active Substance: ESOMEPRAZOLE MAGNESIUM
  26. OMEPRAZOLE. [Concomitant]
     Active Substance: OMEPRAZOLE

REACTIONS (2)
  - Fatigue [None]
  - Pruritus [None]

NARRATIVE: CASE EVENT DATE: 20180223
